FAERS Safety Report 4950562-0 (Version None)
Quarter: 2006Q1

REPORT INFORMATION
  Report Type: 
  Country: None (occurrence: None)
  Receive Date: 20060315
  Receipt Date: 20050224
  Transmission Date: 20060701
  Serious: Yes (Death, Other)
  Sender: FDA-Public Use
  Company Number: CA200601002265

PATIENT
  Age: 82 Year
  Sex: Female

DRUGS (7)
  1. ZYPREXA [Suspect]
     Dosage: 2.5 MG, DAILY (A/D), ORAL
     Route: 048
     Dates: start: 20051121, end: 20051230
  2. ZYPREXA [Suspect]
     Dosage: 2.5 MG, DAILY (A/D), ORAL
     Route: 048
     Dates: start: 20051230, end: 20060118
  3. HYDROCHLOROTHIAZIDE [Concomitant]
  4. PLAVIX [Concomitant]
  5. PARIET  /JPN/(RABEPRAZOLE SODIUM) [Concomitant]
  6. GLYBURIDE [Concomitant]
  7. ACEBUTOLOL [Concomitant]

REACTIONS (6)
  - CARDIAC FAILURE [None]
  - CEREBROVASCULAR ACCIDENT [None]
  - DEHYDRATION [None]
  - DYSPHAGIA [None]
  - EATING DISORDER SYMPTOM [None]
  - SPEECH DISORDER [None]
